FAERS Safety Report 6718262-4 (Version None)
Quarter: 2010Q2

REPORT INFORMATION
  Report Type: 
  Country: None (occurrence: None)
  Receive Date: 20100510
  Receipt Date: 20100507
  Transmission Date: 20101027
  Serious: Yes (Hospitalization)
  Sender: FDA-Public Use
  Company Number: GB-TEVA-198089ISR

PATIENT
  Age: 36 Year
  Sex: Female

DRUGS (10)
  1. DIAZEPAM [Suspect]
  2. LACTULOSE [Suspect]
  3. LANSOPRAZOLE [Suspect]
     Route: 048
  4. PERINDOPRIL ERBUMINE [Suspect]
     Route: 048
  5. TRIMETHOPRIM [Suspect]
     Indication: URINARY TRACT INFECTION
  6. ZOPICLONE [Suspect]
  7. CLOZAPINE [Suspect]
     Indication: SCHIZOPHRENIA
     Route: 048
     Dates: start: 20060605, end: 20060713
  8. CLOZAPINE [Suspect]
     Dates: start: 20050519
  9. FERROUS SULFATE TAB [Suspect]
     Route: 048
  10. FOLIC ACID [Suspect]
     Route: 048

REACTIONS (19)
  - ABDOMINAL TENDERNESS [None]
  - BODY MASS INDEX DECREASED [None]
  - CARDIAC MURMUR [None]
  - CONSTIPATION [None]
  - DIABETES MELLITUS [None]
  - HIATUS HERNIA [None]
  - IRON DEFICIENCY ANAEMIA [None]
  - MALAISE [None]
  - MEAN CELL VOLUME DECREASED [None]
  - MONOCYTE COUNT INCREASED [None]
  - NEUTROPHIL COUNT INCREASED [None]
  - PHYSICAL ASSAULT [None]
  - PYREXIA [None]
  - SINUS TACHYCARDIA [None]
  - SKIN DISORDER [None]
  - STAPHYLOCOCCAL INFECTION [None]
  - THROMBOCYTOPENIA [None]
  - URINARY TRACT INFECTION [None]
  - WHITE BLOOD CELL COUNT INCREASED [None]
